FAERS Safety Report 9009164 (Version 3)
Quarter: 2013Q1

REPORT INFORMATION
  Report Type: Report from Study
  Country: DE (occurrence: DE)
  Receive Date: 20130111
  Receipt Date: 20130125
  Transmission Date: 20140127
  Serious: Yes (Life-Threatening, Hospitalization)
  Sender: FDA-Public Use
  Company Number: DE-ROCHE-1161390

PATIENT
  Age: 73 Year
  Sex: Male
  Weight: 73.6 kg

DRUGS (15)
  1. METHOXY POLYETHYLENE GLYCOL-EPOETIN BETA [Suspect]
     Indication: NEPHROGENIC ANAEMIA
     Dosage: LAST DOSE PRIOR SAE: 02/FEB/2012
     Route: 058
     Dates: start: 20110630
  2. METOPROLOL [Concomitant]
     Route: 065
     Dates: start: 20110316
  3. RAMIPRIL [Concomitant]
     Route: 065
     Dates: start: 20110307
  4. DIGITOXIN [Concomitant]
     Route: 065
     Dates: start: 20110929
  5. HYDROCHLOROTHIAZIDE [Concomitant]
     Route: 065
     Dates: start: 20110929
  6. TORASEMID [Concomitant]
     Route: 065
     Dates: start: 20110308
  7. SIMVASTATIN [Concomitant]
     Route: 065
     Dates: start: 20110307
  8. CLOPIDOGREL [Concomitant]
     Route: 065
     Dates: start: 20110929
  9. PANTOPRAZOL [Concomitant]
     Route: 065
     Dates: start: 20110307
  10. COLECALCIFEROL [Concomitant]
     Route: 065
     Dates: start: 20120106
  11. VITAMIN B6 [Concomitant]
     Route: 065
     Dates: start: 20110506
  12. FOLSAURE [Concomitant]
     Route: 065
     Dates: start: 20110920
  13. NATRIUMHYDROGENCARBONAT [Concomitant]
     Route: 065
     Dates: start: 20111228
  14. PARACETAMOL [Concomitant]
     Route: 065
     Dates: start: 20111213
  15. ALLOPURINOL [Concomitant]
     Route: 065
     Dates: start: 20111222

REACTIONS (1)
  - Coronary artery disease [Recovered/Resolved]
